FAERS Safety Report 9277947 (Version 1)
Quarter: 2013Q2

REPORT INFORMATION
  Report Type: Spontaneous
  Country: US (occurrence: None)
  Receive Date: 20130503
  Receipt Date: 20130503
  Transmission Date: 20140414
  Serious: Yes (Life-Threatening, Hospitalization)
  Sender: FDA-Public Use
  Company Number: None

PATIENT
  Age: 33 Year
  Sex: Female
  Weight: 76.2 kg

DRUGS (1)
  1. SPRINTEC [Suspect]
     Indication: MENSTRUATION IRREGULAR
     Dosage: ONE PO QD
     Route: 048
     Dates: start: 20130317, end: 20130424

REACTIONS (1)
  - Pulmonary embolism [None]
